FAERS Safety Report 7757303-2 (Version None)
Quarter: 2011Q3

REPORT INFORMATION
  Report Type: 
  Country: None (occurrence: None)
  Receive Date: 20110916
  Receipt Date: 20110909
  Transmission Date: 20111222
  Serious: Yes (Other)
  Sender: FDA-Public Use
  Company Number: US-PURDUE-USA-2011-0073474

PATIENT
  Sex: Male

DRUGS (2)
  1. OXYCONTIN [Suspect]
     Indication: ROTATOR CUFF SYNDROME
     Dosage: 90MG IN THE MORNING AND 80MG AT NIGHT
     Dates: start: 20101101, end: 20110805
  2. OXYCONTIN [Suspect]
     Indication: PAIN

REACTIONS (9)
  - DRUG WITHDRAWAL SYNDROME [None]
  - PRODUCT QUALITY ISSUE [None]
  - UNEVALUABLE EVENT [None]
  - ASTHENIA [None]
  - ROTATOR CUFF REPAIR [None]
  - INADEQUATE ANALGESIA [None]
  - INSOMNIA [None]
  - DECREASED APPETITE [None]
  - DIARRHOEA [None]
